FAERS Safety Report 4815858-1 (Version None)
Quarter: 2005Q4

REPORT INFORMATION
  Report Type: 
  Country: None (occurrence: None)
  Receive Date: 20051026
  Receipt Date: 20051013
  Transmission Date: 20060501
  Serious: Yes (Hospitalization, Other)
  Sender: FDA-Public Use
  Company Number: 2005142586

PATIENT
  Sex: Male

DRUGS (3)
  1. EMCYT [Suspect]
     Indication: PROSTATE CANCER
     Dosage: TID INTERVAL: EVERY DAY), ORAL
     Route: 048
     Dates: start: 20050101
  2. ACTONEL [Concomitant]
  3. TAMSULOSIN HYDROCHLORIDE (TAMSULOSIN HYDROCHLORIDE) [Concomitant]

REACTIONS (10)
  - ABDOMINAL INFECTION [None]
  - ASTHENIA [None]
  - CHILLS [None]
  - CLOSTRIDIAL INFECTION [None]
  - DEPRESSED LEVEL OF CONSCIOUSNESS [None]
  - DIARRHOEA [None]
  - NAUSEA [None]
  - PYREXIA [None]
  - SINUSITIS [None]
  - VOMITING [None]
